FAERS Safety Report 8082586-1 (Version None)
Quarter: 2012Q1

REPORT INFORMATION
  Report Type: 
  Country: None (occurrence: None)
  Receive Date: 20120127
  Receipt Date: 20110216
  Transmission Date: 20120608
  Serious: No
  Sender: FDA-Public Use
  Company Number: US-ABBOTT-11P-163-0707009-00

PATIENT
  Sex: Female
  Weight: 90.8 kg

DRUGS (14)
  1. LO ESTERIN [Concomitant]
     Indication: HORMONE REPLACEMENT THERAPY
  2. LOVAZA [Concomitant]
     Indication: PRODUCT USED FOR UNKNOWN INDICATION
  3. LISINOPRIL [Concomitant]
     Indication: HYPERTENSION
  4. MULTIPLE VITAMINS [Concomitant]
     Indication: VITAMIN SUPPLEMENTATION
  5. EFFEXOR [Concomitant]
     Indication: DEPRESSION
  6. PRAVASTATIN [Concomitant]
     Indication: BLOOD CHOLESTEROL INCREASED
  7. HUMIRA [Suspect]
     Indication: PSORIASIS
  8. FOLBIC [Concomitant]
     Indication: PRODUCT USED FOR UNKNOWN INDICATION
  9. HUMALOG [Concomitant]
     Indication: DIABETES MELLITUS
  10. METHOTREXATE [Concomitant]
     Indication: PSORIATIC ARTHROPATHY
  11. TRAMADOL HCL [Concomitant]
     Indication: PSORIATIC ARTHROPATHY
  12. HUMIRA [Suspect]
     Indication: PSORIATIC ARTHROPATHY
     Dates: start: 20100805
  13. CALCIUM PLUS D [Concomitant]
     Indication: MINERAL SUPPLEMENTATION
  14. LANTUS [Concomitant]
     Indication: DIABETES MELLITUS

REACTIONS (1)
  - RESTLESSNESS [None]
